FAERS Safety Report 6561842-X (Version None)
Quarter: 2010Q1

REPORT INFORMATION
  Report Type: 
  Country: None (occurrence: None)
  Receive Date: 20100130
  Receipt Date: 20091030
  Transmission Date: 20100710
  Serious: No
  Sender: FDA-Public Use
  Company Number: US-ABBOTT-09P-163-0606501-00

PATIENT
  Age: 27 Year
  Sex: Female
  Weight: 56.75 kg

DRUGS (2)
  1. HUMIRA [Suspect]
     Indication: CROHN'S DISEASE
     Dates: start: 20070101, end: 20080101
  2. HUMIRA [Suspect]
     Dates: start: 20090701, end: 20091001

REACTIONS (5)
  - CROHN'S DISEASE [None]
  - CYSTITIS [None]
  - EYE INFECTION [None]
  - HAEMATURIA [None]
  - INFECTION [None]
